FAERS Safety Report 5163895-2 (Version None)
Quarter: 2006Q4

REPORT INFORMATION
  Report Type: 
  Country: None (occurrence: None)
  Receive Date: 20061124
  Receipt Date: 20061113
  Transmission Date: 20070319
  Serious: Yes (Other)
  Sender: FDA-Public Use
  Company Number: 2006130395

PATIENT
  Age: 14 Year
  Sex: Female
  Weight: 68.9467 kg

DRUGS (5)
  1. ZARONTIN [Suspect]
     Indication: EPILEPSY
     Dosage: 250 MG (250 MG, 1 IN 1 D), ORAL
     Route: 048
     Dates: start: 20060915
  2. ZARONTIN [Suspect]
     Indication: PETIT MAL EPILEPSY
     Dosage: 250 MG (250 MG, 1 IN 1 D), ORAL
     Route: 048
     Dates: start: 20060915
  3. PRILOSEC [Concomitant]
  4. ZYRTEC [Concomitant]
  5. KEPPRA [Concomitant]

REACTIONS (3)
  - COMPLEX PARTIAL SEIZURES [None]
  - GRAND MAL CONVULSION [None]
  - MIGRAINE [None]
